FAERS Safety Report 11498573 (Version 1)
Quarter: 2015Q3

REPORT INFORMATION
  Report Type: Report from Study
  Country: GB (occurrence: GB)
  Receive Date: 20150911
  Receipt Date: 20150911
  Transmission Date: 20151125
  Serious: Yes (Other)
  Sender: FDA-Public Use
  Company Number: GB-JAZZ-2015-GB-002943

PATIENT
  Age: 20 Year
  Sex: Male
  Weight: 74.7 kg

DRUGS (3)
  1. XYREM [Suspect]
     Active Substance: SODIUM OXYBATE
     Indication: PRODUCT USED FOR UNKNOWN INDICATION
     Dosage: 4.5 G, QD
     Route: 048
     Dates: start: 201502, end: 201502
  2. JZP-386 [Suspect]
     Active Substance: INVESTIGATIONAL PRODUCT
     Indication: PRODUCT USED FOR UNKNOWN INDICATION
     Dosage: 4.5 G, QD
     Route: 048
     Dates: start: 201502, end: 201502
  3. PLACEBO [Suspect]
     Active Substance: UNSPECIFIED INGREDIENT
     Indication: PRODUCT USED FOR UNKNOWN INDICATION
     Dosage: UNK
     Route: 048
     Dates: start: 201502, end: 201502

REACTIONS (5)
  - Anxiety [None]
  - Fear [None]
  - Agitation [None]
  - Myoclonus [Recovered/Resolved]
  - Dyspnoea [None]

NARRATIVE: CASE EVENT DATE: 20150220
